FAERS Safety Report 7852105-0 (Version None)
Quarter: 2011Q4

REPORT INFORMATION
  Report Type: 
  Country: None (occurrence: None)
  Receive Date: 20111026
  Receipt Date: 20111020
  Transmission Date: 20120403
  Serious: Yes (Hospitalization, Other)
  Sender: FDA-Public Use
  Company Number: BR-PFIZER INC-2011254707

PATIENT
  Age: 72 Year
  Sex: Female

DRUGS (9)
  1. DIABINESE [Suspect]
     Dosage: 125 MG, DAILY
     Route: 048
     Dates: start: 20000810
  2. ALLOPURINOL [Concomitant]
  3. DIABINESE [Suspect]
     Dosage: 125 MG, 1X/DAY
  4. DIOVAN [Suspect]
     Dosage: 160 MG, 1X/DAY
  5. LESCOL [Concomitant]
     Dosage: 80 MG, DAILY
  6. CAPTOPRIL [Concomitant]
  7. ASPIRIN [Concomitant]
  8. DIOVAN [Suspect]
     Dosage: 80 MG, DAILY
  9. DIABINESE [Suspect]
     Dosage: 250 MG, DAILY
     Route: 048
     Dates: start: 20020101

REACTIONS (4)
  - INFECTION [None]
  - HYPOGLYCAEMIA [None]
  - DIABETIC NEPHROPATHY [None]
  - HYPERURICAEMIA [None]
